FAERS Safety Report 8398484-X (Version None)
Quarter: 2012Q2

REPORT INFORMATION
  Report Type: 
  Country: None (occurrence: None)
  Receive Date: 20120531
  Receipt Date: 20120522
  Transmission Date: 20120825
  Serious: Yes (Hospitalization, Other)
  Sender: FDA-Public Use
  Company Number: BR-ROCHE-1013962

PATIENT
  Sex: Male
  Weight: 80 kg

DRUGS (3)
  1. XOLAIR [Suspect]
     Dates: start: 20120308
  2. XOLAIR [Suspect]
     Indication: ASTHMA
     Route: 058
  3. XOLAIR [Suspect]
     Dates: start: 20120206

REACTIONS (11)
  - TREMOR [None]
  - FEELING ABNORMAL [None]
  - FORCED EXPIRATORY VOLUME DECREASED [None]
  - MALAISE [None]
  - RESPIRATORY TRACT INFLAMMATION [None]
  - HYPERTENSION [None]
  - OROPHARYNGEAL PAIN [None]
  - HEADACHE [None]
  - INJECTED LIMB MOBILITY DECREASED [None]
  - DYSPNOEA [None]
  - FATIGUE [None]
